FAERS Safety Report 7428822-3 (Version None)
Quarter: 2011Q2

REPORT INFORMATION
  Report Type: 
  Country: None (occurrence: None)
  Receive Date: 20110421
  Receipt Date: 20110415
  Transmission Date: 20111010
  Serious: Yes (Other)
  Sender: FDA-Public Use
  Company Number: JP-PFIZER INC-2011086180

PATIENT

DRUGS (1)
  1. ANCARON [Suspect]
     Indication: PRODUCT USED FOR UNKNOWN INDICATION
     Dosage: UNK

REACTIONS (2)
  - ELECTROCARDIOGRAM QT PROLONGED [None]
  - LIVER SCAN ABNORMAL [None]
